FAERS Safety Report 16892958 (Version 3)
Quarter: 2019Q4

REPORT INFORMATION
  Report Type: Report from Study
  Country: None (occurrence: NL)
  Receive Date: 20191007
  Receipt Date: 20191226
  Transmission Date: 20200122
  Serious: Yes (Hospitalization)
  Sender: FDA-Public Use
  Company Number: NL-ABBVIE-19S-114-2693380-00

PATIENT
  Sex: Female
  Weight: 85 kg

DRUGS (7)
  1. DUODOPA [Suspect]
     Active Substance: CARBIDOPA\LEVODOPA
     Route: 050
  2. OZEMPIC [Concomitant]
     Active Substance: SEMAGLUTIDE
     Indication: BLOOD GLUCOSE
  3. MADOPAR HBS [Concomitant]
     Active Substance: BENSERAZIDE HYDROCHLORIDE\LEVODOPA
     Indication: PRODUCT USED FOR UNKNOWN INDICATION
  4. OZEMPIC [Concomitant]
     Active Substance: SEMAGLUTIDE
     Indication: DIABETES MELLITUS
  5. DUODOPA [Suspect]
     Active Substance: CARBIDOPA\LEVODOPA
     Indication: PARKINSON^S DISEASE
     Route: 050
     Dates: start: 20180521
  6. LEVODOPA-CARBIDOPA [Concomitant]
     Active Substance: CARBIDOPA\LEVODOPA
     Indication: PARKINSON^S DISEASE
  7. DUODOPA [Suspect]
     Active Substance: CARBIDOPA\LEVODOPA
     Route: 050

REACTIONS (24)
  - Haemoptysis [Not Recovered/Not Resolved]
  - Musculoskeletal stiffness [Unknown]
  - Musculoskeletal disorder [Not Recovered/Not Resolved]
  - Stoma site haemorrhage [Not Recovered/Not Resolved]
  - Fibroma [Not Recovered/Not Resolved]
  - Bradykinesia [Unknown]
  - Reduced facial expression [Not Recovered/Not Resolved]
  - Decreased appetite [Not Recovered/Not Resolved]
  - Stoma site discharge [Recovered/Resolved]
  - Emotional distress [Recovered/Resolved]
  - Balance disorder [Not Recovered/Not Resolved]
  - Muscle rigidity [Unknown]
  - Freezing phenomenon [Not Recovered/Not Resolved]
  - Fear [Not Recovered/Not Resolved]
  - Stoma site discharge [Not Recovered/Not Resolved]
  - Stoma site discomfort [Not Recovered/Not Resolved]
  - On and off phenomenon [Recovering/Resolving]
  - Dyskinesia [Not Recovered/Not Resolved]
  - Sluggishness [Not Recovered/Not Resolved]
  - Asthenia [Not Recovered/Not Resolved]
  - Tremor [Not Recovered/Not Resolved]
  - Mobility decreased [Unknown]
  - Weight decreased [Not Recovered/Not Resolved]
  - Insomnia [Not Recovered/Not Resolved]

NARRATIVE: CASE EVENT DATE: 2019
